FAERS Safety Report 7235784-0 (Version None)
Quarter: 2011Q1

REPORT INFORMATION
  Report Type: 
  Country: None (occurrence: None)
  Receive Date: 20110120
  Receipt Date: 20110112
  Transmission Date: 20110831
  Serious: Yes (Other)
  Sender: FDA-Public Use
  Company Number: US-BAXTER-2011BH000498

PATIENT
  Age: 62 Year
  Sex: Female

DRUGS (2)
  1. INSULIN [Concomitant]
     Indication: TYPE 1 DIABETES MELLITUS
     Route: 058
  2. DIANEAL [Suspect]
     Indication: PERITONEAL DIALYSIS
     Route: 033
     Dates: start: 20100801

REACTIONS (3)
  - INFLUENZA [None]
  - DEHYDRATION [None]
  - VOMITING [None]
